FAERS Safety Report 8181008-X (Version None)
Quarter: 2012Q1

REPORT INFORMATION
  Report Type: 
  Country: None (occurrence: None)
  Receive Date: 20120229
  Receipt Date: 20120222
  Transmission Date: 20120608
  Serious: Yes (Life-Threatening, Hospitalization)
  Sender: FDA-Public Use
  Company Number: 2012AL000016

PATIENT
  Age: 65 Year
  Sex: Male

DRUGS (3)
  1. FOLOTYN [Suspect]
     Indication: PERIPHERAL T-CELL LYMPHOMA UNSPECIFIED
     Dosage: 56 MG;QW;IV
     Route: 042
     Dates: start: 20120109, end: 20120206
  2. ACYCLOVIR [Concomitant]
  3. KEFLEX [Concomitant]

REACTIONS (5)
  - CORONAVIRUS TEST POSITIVE [None]
  - INFLUENZA B VIRUS TEST POSITIVE [None]
  - FEBRILE NEUTROPENIA [None]
  - MUCOSAL INFLAMMATION [None]
  - ACUTE RESPIRATORY DISTRESS SYNDROME [None]
